FAERS Safety Report 12634313 (Version 1)
Quarter: 2016Q3

REPORT INFORMATION
  Report Type: Report from Study
  Country: FR (occurrence: FR)
  Receive Date: 20160808
  Receipt Date: 20160808
  Transmission Date: 20161109
  Serious: Yes (Death, Other)
  Sender: FDA-Public Use
  Company Number: FR-ABBVIE-16P-056-1694479-00

PATIENT
  Age: 69 Year
  Sex: Male
  Weight: 63 kg

DRUGS (3)
  1. VIEKIRAX [Suspect]
     Active Substance: OMBITASVIR\PARITAPREVIR\RITONAVIR
     Indication: HEPATITIS C
     Route: 048
     Dates: start: 20130619, end: 20130910
  2. EXVIERA [Suspect]
     Active Substance: DASABUVIR
     Indication: HEPATITIS C
     Route: 048
     Dates: start: 20130619, end: 20130910
  3. RIBAVIRIN. [Suspect]
     Active Substance: RIBAVIRIN
     Indication: HEPATITIS C
     Route: 048

REACTIONS (7)
  - Staphylococcal sepsis [Unknown]
  - Pneumonia aspiration [Fatal]
  - Malnutrition [Unknown]
  - Adenocarcinoma gastric [Fatal]
  - Hypoxia [Fatal]
  - Douglas^ abscess [Unknown]
  - Lung disorder [Fatal]

NARRATIVE: CASE EVENT DATE: 201502
